FAERS Safety Report 8551531 (Version 2)
Quarter: 2012Q4

REPORT INFORMATION
  Report Type: 
  Country: US (occurrence: US)
  Receive Date: 20120508
  Receipt Date: 20120907
  Transmission Date: 20130627
  Serious: Yes (Other)
  Sender: FDA-Public Use
  Company Number: US-BAYER-2012-042956

PATIENT
  Age: 46 Year
  Sex: Female
  Weight: 73.92 kg

DRUGS (17)
  1. YAZ [Suspect]
     Indication: CONTRACEPTION
     Dosage: UNK
     Dates: start: 20080622, end: 20080701
  2. TRAMADOL [Concomitant]
     Dosage: 50 mg, Take 1 to 2 tablets 3 times a day
     Route: 048
     Dates: start: 20080430, end: 20081003
  3. ERGONOVINE MALEATE [Concomitant]
     Dosage: 0.2 mg, UNK
     Route: 048
     Dates: start: 20080617
  4. IBUPROFEN [Concomitant]
     Dosage: 400 mg 2, UNK
     Route: 048
     Dates: start: 20080617
  5. DOXYCYCLINE [Concomitant]
     Dosage: 100 mg 2, UNK
     Route: 048
     Dates: start: 20080617
  6. ALEVE [Concomitant]
     Dosage: UNK
     Route: 048
     Dates: start: 20080701
  7. NASONEX [Concomitant]
     Dosage: 50 mcg 2 sprays each nostril daily
     Route: 045
     Dates: start: 20080829
  8. LEXAPRO [Concomitant]
     Dosage: 10 mg, daily
     Route: 048
     Dates: start: 20080829, end: 20090218
  9. NEXIUM [Concomitant]
     Dosage: 40 mg, daily
     Route: 048
     Dates: start: 20080829
  10. CIPRO [Concomitant]
     Dosage: 500 mg, BID
     Route: 048
     Dates: start: 20080925, end: 20081003
  11. Z-PAK [Concomitant]
     Dosage: UNK
     Route: 048
     Dates: start: 20080829
  12. CLINORIL [Concomitant]
     Dosage: 200 mg, BID
     Route: 048
     Dates: start: 20081003
  13. ASPIRIN [Concomitant]
     Dosage: UNK
     Route: 048
     Dates: start: 20090219
  14. EFFEXOR [Concomitant]
     Indication: DEPRESSION
     Dosage: UNK
     Route: 048
     Dates: start: 2007
  15. ZITHROMAX [Concomitant]
  16. NSAID^S [Concomitant]
     Indication: PAIN
  17. LOESTRIN [Concomitant]
     Indication: CONTRACEPTION

REACTIONS (9)
  - Thrombophlebitis superficial [Recovered/Resolved]
  - Thrombophlebitis superficial [Recovered/Resolved]
  - Deep vein thrombosis [Recovered/Resolved]
  - Injury [Recovered/Resolved]
  - Pain [None]
  - Pain in extremity [Recovered/Resolved]
  - Pain in extremity [Recovered/Resolved]
  - Pain in extremity [Recovered/Resolved]
  - Mental disorder [None]
